FAERS Safety Report 5468680-X (Version None)
Quarter: 2007Q3

REPORT INFORMATION
  Report Type: 
  Country: None (occurrence: None)
  Receive Date: 20070926
  Receipt Date: 20070914
  Transmission Date: 20080115
  Serious: Yes (Death)
  Sender: FDA-Public Use
  Company Number: JP-SANOFI-SYNTHELABO-A01200705711

PATIENT
  Sex: Male
  Weight: 56 kg

DRUGS (8)
  1. OXALIPLATIN [Suspect]
     Indication: COLON CANCER
     Dosage: 62.5 MG/M2
     Route: 041
     Dates: start: 20070424, end: 20070424
  2. DECADRON [Concomitant]
     Route: 042
     Dates: start: 20070424, end: 20070424
  3. PRIMPERAN [Concomitant]
     Indication: NAUSEA
     Route: 042
     Dates: start: 20070429, end: 20070429
  4. FLUOROURACIL [Suspect]
     Indication: COLON CANCER
     Dosage: 312.5 MG/M2 IN BOLUS THEN 2500MG 500 MG
     Route: 040
     Dates: start: 20070424, end: 20070424
  5. FLUOROURACIL [Suspect]
     Dosage: 1562.5 MG/M2 AS INFUSION 2500 MG
     Route: 042
     Dates: start: 20070424, end: 20070425
  6. ISOVORIN [Suspect]
     Indication: COLON CANCER
     Dosage: 156.3 MG/M2 250 MG
     Route: 042
     Dates: start: 20070424, end: 20070425
  7. HUMULIN 70/30 [Concomitant]
     Indication: DIABETES MELLITUS
     Route: 058
     Dates: start: 20070425, end: 20070425
  8. NASEA [Concomitant]
     Route: 042
     Dates: start: 20070424, end: 20070424

REACTIONS (2)
  - HAEMOGLOBIN DECREASED [None]
  - UPPER GASTROINTESTINAL HAEMORRHAGE [None]
